FAERS Safety Report 25947458 (Version 1)
Quarter: 2025Q4

REPORT INFORMATION
  Report Type: Report from Study
  Country: CH (occurrence: CH)
  Receive Date: 20251022
  Receipt Date: 20251022
  Transmission Date: 20260118
  Serious: Yes (Other)
  Sender: ABBVIE
  Company Number: CH-ABBVIE-6425396

PATIENT
  Age: 81 Year
  Sex: Female

DRUGS (6)
  1. CARBIDOPA [Suspect]
     Active Substance: CARBIDOPA
     Indication: Parkinson^s disease
     Dosage: DOSE INCREASED: CRD 2.8 ML/H, MD: 3 ML EFFECTIVE DOSE + 3 ML TUBE FILLING, ED: 1.5 ML/, LAST ADMI...
     Route: 050
     Dates: start: 202510
  2. CARBIDOPA [Suspect]
     Active Substance: CARBIDOPA
     Dosage: MORNING DOSE 6.0 ML, CRD 2.7 ML/H, BOLUS 1.5 ML, 16-HOUR THERAPY?1 CARTRIDGE/DAY
     Route: 050
     Dates: start: 20231011, end: 202509
  3. HERBALS [Concomitant]
     Active Substance: HERBALS
     Indication: Constipation
     Dosage: FREQUENCY: MAX. 2X/24 H
     Route: 048
  4. METAMIZOLE [Concomitant]
     Active Substance: METAMIZOLE
     Indication: Product used for unknown indication
     Dosage: TIME INTERVAL: AS NECESSARY: FREQUENCY: MAX. 4X/24 H
     Route: 048
  5. BENSERAZIDE HYDROCHLORIDE\LEVODOPA [Concomitant]
     Active Substance: BENSERAZIDE HYDROCHLORIDE\LEVODOPA
     Indication: Product used for unknown indication
  6. ASPIRIN [Concomitant]
     Active Substance: ASPIRIN
     Indication: Product used for unknown indication

REACTIONS (22)
  - Small intestinal perforation [Unknown]
  - Stoma site pain [Not Recovered/Not Resolved]
  - Drug intolerance [Unknown]
  - Device issue [Unknown]
  - Peritonitis [Not Recovered/Not Resolved]
  - Abdominal pain [Not Recovered/Not Resolved]
  - Orthostatic intolerance [Unknown]
  - Vitamin B12 decreased [Unknown]
  - Thinking abnormal [Unknown]
  - Stress [Unknown]
  - Illness [Unknown]
  - Gastrointestinal infection [Not Recovered/Not Resolved]
  - Haemorrhage [Unknown]
  - Chorea [Not Recovered/Not Resolved]
  - Dizziness [Unknown]
  - Stoma site erythema [Recovering/Resolving]
  - Stoma site hypergranulation [Recovering/Resolving]
  - Parkinsonism [Not Recovered/Not Resolved]
  - Insomnia [Unknown]
  - Terminal insomnia [Unknown]
  - Discharge [Unknown]
  - Pain [Unknown]

NARRATIVE: CASE EVENT DATE: 20240101
